FAERS Safety Report 8346626-4 (Version None)
Quarter: 2012Q2

REPORT INFORMATION
  Report Type: 
  Country: None (occurrence: None)
  Receive Date: 20120509
  Receipt Date: 20120504
  Transmission Date: 20120825
  Serious: Yes (Hospitalization, Other)
  Sender: FDA-Public Use
  Company Number: PHHY2011DE21515

PATIENT
  Sex: Female
  Weight: 83 kg

DRUGS (13)
  1. DIOVAN HCT [Suspect]
     Indication: HYPERTENSION
     Dosage: 1 DF, QD
     Route: 048
     Dates: start: 20081208
  2. MULTAQ [Concomitant]
     Dosage: 400 MG, DAILY
     Route: 048
     Dates: start: 20100209
  3. MOXONIDINE [Concomitant]
     Dosage: 0.2 MG, DAILY
     Route: 048
     Dates: start: 20051215, end: 20101102
  4. ALPHA-RECEPTOR BLOCKING AGENTS [Concomitant]
  5. ANTICOAGULANTS [Concomitant]
     Route: 048
  6. BISOPROLOL FUMARATE [Concomitant]
     Indication: ATRIAL FIBRILLATION
     Dosage: 10 MG, UNK
     Route: 048
     Dates: start: 20100809
  7. RASILEZ [Suspect]
     Indication: HYPERTENSION
     Dosage: 1 DF, QD
     Route: 048
     Dates: start: 20090224, end: 20120220
  8. DIURETICS [Concomitant]
  9. INDAPAMIDE [Concomitant]
     Dosage: 5 MG, DAILY
     Route: 048
     Dates: start: 20031216, end: 20101102
  10. BETA BLOCKING AGENTS [Concomitant]
  11. EXFORGE [Suspect]
     Indication: HYPERTENSION
     Dosage: 1 DF, QD
     Route: 048
     Dates: start: 20081208
  12. FALITHROM [Concomitant]
     Indication: ATRIAL FIBRILLATION
     Dosage: 3 MG, DAILY
     Route: 048
     Dates: start: 20080521
  13. DIGITOXIN TAB [Concomitant]
     Dosage: 0.07 MG, DAILY
     Route: 048
     Dates: start: 20001211, end: 20101102

REACTIONS (11)
  - NEPHROPATHY [None]
  - DYSPNOEA [None]
  - BLOOD PRESSURE DECREASED [None]
  - CARDIAC FAILURE [None]
  - OBESITY [None]
  - MYOCARDIAL INFARCTION [None]
  - VENTRICULAR EXTRASYSTOLES [None]
  - HYPERURICAEMIA [None]
  - SLEEP APNOEA SYNDROME [None]
  - TACHYARRHYTHMIA [None]
  - LOCAL SWELLING [None]
